FAERS Safety Report 15376727 (Version 1)
Quarter: 2018Q3

REPORT INFORMATION
  Report Type: Spontaneous
  Country: IT (occurrence: IT)
  Receive Date: 20180913
  Receipt Date: 20180913
  Transmission Date: 20181010
  Serious: Yes (Hospitalization)
  Sender: FDA-Public Use
  Company Number: IT-SUN PHARMACEUTICAL INDUSTRIES LTD-2018RR-184189

PATIENT
  Age: 22 Year
  Sex: Male

DRUGS (5)
  1. RISPERIDONE. [Suspect]
     Active Substance: RISPERIDONE
     Indication: DRUG ABUSE
     Dosage: ()
     Route: 048
     Dates: start: 20180730, end: 20180730
  2. OLANZAPINE. [Suspect]
     Active Substance: OLANZAPINE
     Indication: DRUG ABUSE
     Dosage: ()
     Route: 048
     Dates: start: 20180730, end: 20180730
  3. DEPAKIN [Suspect]
     Active Substance: VALPROATE SODIUM
     Indication: DRUG ABUSE
     Dosage: ()
     Route: 048
     Dates: start: 20180730, end: 20180730
  4. HALDOL [Suspect]
     Active Substance: HALOPERIDOL
     Indication: DRUG ABUSE
     Dosage: ()
     Route: 048
     Dates: start: 20180730, end: 20180730
  5. DIAZEPAM. [Suspect]
     Active Substance: DIAZEPAM
     Indication: DRUG ABUSE
     Dosage: ()
     Route: 048
     Dates: start: 20180730, end: 20180730

REACTIONS (3)
  - Respiration abnormal [Recovered/Resolved]
  - Sopor [Recovered/Resolved]
  - Drug abuse [Recovered/Resolved]

NARRATIVE: CASE EVENT DATE: 20180730
